FAERS Safety Report 9957112 (Version 1)
Quarter: 2014Q1

REPORT INFORMATION
  Report Type: Report from Study
  Country: US (occurrence: US)
  Receive Date: 20140304
  Receipt Date: 20140304
  Transmission Date: 20141002
  Serious: No
  Sender: FDA-Public Use
  Company Number: US-ABBVIE-13P-163-1096510-00

PATIENT
  Sex: Female

DRUGS (2)
  1. HUMIRA [Suspect]
     Indication: CROHN^S DISEASE
  2. PHENERGAN [Concomitant]
     Indication: NAUSEA

REACTIONS (8)
  - Diarrhoea [Unknown]
  - Dehydration [Unknown]
  - Injection site bruising [Not Recovered/Not Resolved]
  - Vomiting in pregnancy [Unknown]
  - Injection site haemorrhage [Unknown]
  - Injection site pain [Unknown]
  - Drug administration error [Unknown]
  - Incorrect dose administered [Unknown]
